FAERS Safety Report 4483529-X (Version None)
Quarter: 2004Q4

REPORT INFORMATION
  Report Type: 
  Country: None (occurrence: None)
  Receive Date: 20041020
  Receipt Date: 20041020
  Transmission Date: 20050328
  Serious: Yes (Other)
  Sender: FDA-Public Use
  Company Number: None

PATIENT
  Age: 63 Year
  Sex: Female

DRUGS (1)
  1. BACLOFEN [Suspect]
     Indication: MUSCLE SPASMS
     Dosage: 75 MG ONCE IT
     Route: 037
     Dates: start: 20040122, end: 20040122

REACTIONS (2)
  - CONVULSION [None]
  - RESPIRATORY DISTRESS [None]
